FAERS Safety Report 14684547 (Version 1)
Quarter: 2018Q1

REPORT INFORMATION
  Report Type: Spontaneous
  Country: US (occurrence: US)
  Receive Date: 20180327
  Receipt Date: 20180327
  Transmission Date: 20180509
  Serious: Yes (Other)
  Sender: FDA-Public Use
  Company Number: US-MYLANLABS-2018M1016039

PATIENT
  Sex: Male
  Weight: 75 kg

DRUGS (3)
  1. HALOPERIDOL TABLETS, USP [Suspect]
     Active Substance: HALOPERIDOL
     Dosage: UNK
     Route: 048
  2. RISPERIDONE. [Concomitant]
     Active Substance: RISPERIDONE
     Indication: PRODUCT USED FOR UNKNOWN INDICATION
  3. HALOPERIDOL TABLETS, USP [Suspect]
     Active Substance: HALOPERIDOL
     Indication: SCHIZOPHRENIA
     Dosage: 2 DF, TID
     Route: 048

REACTIONS (7)
  - Fall [Recovered/Resolved]
  - Product availability issue [Unknown]
  - Therapy cessation [Unknown]
  - Dyskinesia [Recovered/Resolved]
  - Hallucination, auditory [Recovered/Resolved]
  - Rib fracture [Recovered/Resolved]
  - Tremor [Recovered/Resolved]
